FAERS Safety Report 12114842 (Version 1)
Quarter: 2016Q1

REPORT INFORMATION
  Report Type: Report from Study
  Country: ES (occurrence: ES)
  Receive Date: 20160225
  Receipt Date: 20160225
  Transmission Date: 20160526
  Serious: Yes (Hospitalization)
  Sender: FDA-Public Use
  Company Number: ES-BAYER-2016-034545

PATIENT
  Age: 79 Year
  Sex: Male
  Weight: 72 kg

DRUGS (4)
  1. STIVARGA [Suspect]
     Active Substance: REGORAFENIB
     Dosage: 120 MG, QD
     Route: 048
     Dates: start: 20150917
  2. STIVARGA [Suspect]
     Active Substance: REGORAFENIB
     Dosage: 160 MG, QD
     Route: 048
     Dates: start: 20150902, end: 20150916
  3. FORTASEC [Concomitant]
     Active Substance: LOPERAMIDE HYDROCHLORIDE
     Dosage: DAILY DOSE 6 MG
     Dates: start: 20150916
  4. ZOLPIDEM [Concomitant]
     Active Substance: ZOLPIDEM\ZOLPIDEM TARTRATE
     Dosage: DAILY DOSE 10 MG
     Dates: start: 2015

REACTIONS (1)
  - Encephalopathy [Recovered/Resolved]

NARRATIVE: CASE EVENT DATE: 20151223
